FAERS Safety Report 8960729 (Version 1)
Quarter: 2012Q4

REPORT INFORMATION
  Report Type: Spontaneous
  Country: US (occurrence: None)
  Receive Date: 20121207
  Receipt Date: 20121207
  Transmission Date: 20130627
  Serious: Yes (Hospitalization, Other)
  Sender: FDA-Public Use
  Company Number: None

PATIENT
  Age: 58 Year
  Sex: Female
  Weight: 83.92 kg

DRUGS (2)
  1. TAMOXIFEN [Suspect]
     Indication: LOBULAR BREAST CARCINOMA (IN SITU)
     Dosage: 5 years
     Route: 048
     Dates: start: 20001001, end: 20001031
  2. RALOXIFENE [Suspect]
     Indication: BREAST HYPERPLASIA
     Dosage: 3 years 9 months
     Route: 048
     Dates: start: 20080801, end: 20121017

REACTIONS (2)
  - Uterine cancer [None]
  - Breast hyperplasia [None]
